FAERS Safety Report 24136429 (Version 1)
Quarter: 2024Q3

REPORT INFORMATION
  Report Type: Spontaneous
  Country: FR (occurrence: FR)
  Receive Date: 20240725
  Receipt Date: 20240725
  Transmission Date: 20241017
  Serious: Yes (Other)
  Sender: RANBAXY
  Company Number: FR-SUN PHARMACEUTICAL INDUSTRIES LTD-2024R1-458392

PATIENT
  Age: 35 Year
  Sex: Female
  Weight: 98 kg

DRUGS (2)
  1. PREDNISONE [Suspect]
     Active Substance: PREDNISONE
     Indication: Birdshot chorioretinopathy
     Dosage: 30 MILLIGRAM, QD
     Route: 065
  2. TOCILIZUMAB [Concomitant]
     Active Substance: TOCILIZUMAB
     Indication: Birdshot chorioretinopathy
     Dosage: 8 MILLIGRAM/KILOGRAM(4  WEEKS)
     Route: 042
     Dates: start: 201707

REACTIONS (1)
  - Disease recurrence [Unknown]
